FAERS Safety Report 24764264 (Version 1)
Quarter: 2024Q4

REPORT INFORMATION
  Report Type: Spontaneous
  Country: US (occurrence: US)
  Receive Date: 20241223
  Receipt Date: 20241223
  Transmission Date: 20250115
  Serious: No
  Sender: ALK-ABELLO
  Company Number: US-ALK-ABELLO A/S-2024AA004399

PATIENT

DRUGS (15)
  1. ALTERNARIA ALTERNATA [Suspect]
     Active Substance: ALTERNARIA ALTERNATA
     Indication: Product used for unknown indication
  2. ASPERGILLUS FUMIGATUS [Suspect]
     Active Substance: ASPERGILLUS FUMIGATUS
     Indication: Product used for unknown indication
  3. CLADOSPORIUM CLADOSPORIOIDES [Suspect]
     Active Substance: CLADOSPORIUM CLADOSPORIOIDES
     Indication: Product used for unknown indication
  4. GIBBERELLA ZEAE [Suspect]
     Active Substance: GIBBERELLA ZEAE
     Indication: Product used for unknown indication
  5. COCHLIOBOLUS SATIVUS [Suspect]
     Active Substance: COCHLIOBOLUS SATIVUS
     Indication: Product used for unknown indication
  6. EPICOCCUM NIGRUM [Suspect]
     Active Substance: EPICOCCUM NIGRUM
     Indication: Product used for unknown indication
  7. MUCOR PLUMBEUS [Suspect]
     Active Substance: MUCOR PLUMBEUS
     Indication: Product used for unknown indication
  8. PERIPLANETA AMERICANA [Suspect]
     Active Substance: PERIPLANETA AMERICANA
     Indication: Product used for unknown indication
  9. SAROCLADIUM STRICTUM [Suspect]
     Active Substance: SAROCLADIUM STRICTUM
     Indication: Product used for unknown indication
  10. PENICILLIUM NOTATUM [Suspect]
     Active Substance: PENICILLIUM CHRYSOGENUM VAR. CHRYSOGENUM
     Indication: Product used for unknown indication
  11. EFFEXOR [Concomitant]
     Active Substance: VENLAFAXINE HYDROCHLORIDE
  12. GABAPENTIN [Concomitant]
     Active Substance: GABAPENTIN
  13. LEVOTHYROXINE SODIUM [Concomitant]
     Active Substance: LEVOTHYROXINE SODIUM
  14. OMEPRAZOLE [Concomitant]
     Active Substance: OMEPRAZOLE
  15. SUCRALFATE [Concomitant]
     Active Substance: SUCRALFATE

REACTIONS (1)
  - Tinea infection [Recovering/Resolving]
